FAERS Safety Report 19624313 (Version 7)
Quarter: 2022Q4

REPORT INFORMATION
  Report Type: Other
  Country: US (occurrence: US)
  Receive Date: 20210729
  Receipt Date: 20221006
  Transmission Date: 20230113
  Serious: Yes (Hospitalization, Other)
  Sender: FDA-Public Use
  Company Number: US-DECIPHERA PHARMACEUTICALS LLC-2021US000619

PATIENT
  Sex: Female

DRUGS (6)
  1. QINLOCK [Suspect]
     Active Substance: RIPRETINIB
     Indication: Gastrointestinal stromal tumour
     Dosage: 100 MILLIGRAM, QD
     Route: 048
     Dates: start: 20210123
  2. QINLOCK [Suspect]
     Active Substance: RIPRETINIB
     Dosage: 100 MILLIGRAM, QD
     Route: 048
  3. QINLOCK [Suspect]
     Active Substance: RIPRETINIB
     Dosage: 100 MILLIGRAM, QD
     Route: 048
  4. QINLOCK [Suspect]
     Active Substance: RIPRETINIB
     Dosage: 100 MILLIGRAM, QD
     Route: 048
  5. OMEPRAZOLE [Concomitant]
     Active Substance: OMEPRAZOLE
     Indication: Product used for unknown indication
     Dosage: UNK
  6. PANTOPRAZOLE [Concomitant]
     Active Substance: PANTOPRAZOLE
     Indication: Product used for unknown indication

REACTIONS (14)
  - Hospitalisation [Unknown]
  - Head injury [Unknown]
  - Skin disorder [Unknown]
  - Keratosis pilaris [Unknown]
  - Blood electrolytes decreased [Unknown]
  - Fall [Unknown]
  - Bone contusion [Unknown]
  - Glomerular filtration rate decreased [Unknown]
  - Low density lipoprotein increased [Unknown]
  - Blood calcium decreased [Unknown]
  - Alopecia [Not Recovered/Not Resolved]
  - Hypertension [Recovered/Resolved]
  - Muscle spasms [Unknown]
  - Underdose [Unknown]

NARRATIVE: CASE EVENT DATE: 20210101
